FAERS Safety Report 6552960-0 (Version None)
Quarter: 2010Q1

REPORT INFORMATION
  Report Type: 
  Country: None (occurrence: None)
  Receive Date: 20100127
  Receipt Date: 20100114
  Transmission Date: 20100710
  Serious: Yes (Other)
  Sender: FDA-Public Use
  Company Number: US-RANBAXY-2009RR-30250

PATIENT
  Age: 59 Year
  Sex: Male

DRUGS (7)
  1. FLUOXETINE [Suspect]
     Indication: DEPRESSION
     Dosage: 40 MG, UNK
  2. BUPROPION [Concomitant]
     Indication: DEPRESSION
  3. CLOPIDOGREL [Concomitant]
     Indication: CORONARY ARTERY DISEASE
  4. ATENOLOL [Concomitant]
     Indication: HYPERTENSION
  5. EZETIMIBE/SIMVASTATIN [Concomitant]
     Indication: HYPERCHOLESTEROLAEMIA
  6. LISINOPRIL [Concomitant]
     Indication: HYPERTENSION
  7. ASPIRIN [Concomitant]

REACTIONS (1)
  - RAPID EYE MOVEMENTS SLEEP ABNORMAL [None]
